FAERS Safety Report 18937556 (Version 1)
Quarter: 2021Q1

REPORT INFORMATION
  Report Type: Report from Study
  Country: BE (occurrence: BE)
  Receive Date: 20210225
  Receipt Date: 20210225
  Transmission Date: 20210420
  Serious: Yes (Death)
  Sender: FDA-Public Use
  Company Number: BE-PFIZER INC-2021179219

PATIENT

DRUGS (1)
  1. VORICONAZOLE. [Suspect]
     Active Substance: VORICONAZOLE
     Indication: ASPERGILLUS INFECTION
     Dosage: 6 MG/KG INTRAVENOUS OR 300 MG ORAL TWICE A DAY ON DAY 1 FOLLOWED BY 4 MG/KG INTRAVENOUSLY OR..

REACTIONS (1)
  - Pancreatitis [Fatal]
